FAERS Safety Report 14934855 (Version 3)
Quarter: 2022Q2

REPORT INFORMATION
  Report Type: Spontaneous
  Country: FR (occurrence: FR)
  Receive Date: 20180524
  Receipt Date: 20220428
  Transmission Date: 20220721
  Serious: Yes (Other)
  Sender: FDA-Public Use
  Company Number: PHHY2018FR006094

PATIENT
  Age: 50 Year
  Sex: Female
  Weight: 121 kg

DRUGS (3)
  1. TACROLIMUS [Suspect]
     Active Substance: TACROLIMUS
     Indication: Renal transplant
     Dosage: 2.5 OT, QD
     Route: 065
     Dates: start: 20170605
  2. TACROLIMUS [Suspect]
     Active Substance: TACROLIMUS
     Indication: Immunosuppression
     Dosage: 2 MG, QD
     Route: 048
     Dates: start: 20190110
  3. CELLCEPT [Concomitant]
     Active Substance: MYCOPHENOLATE MOFETIL
     Indication: Immunosuppression
     Dosage: 1500 UNKNOWN UNIT, TOTAL DAILY DOSE
     Route: 065
     Dates: start: 20160209

REACTIONS (3)
  - Rectal haemorrhage [Not Recovered/Not Resolved]
  - Bowen^s disease [Recovered/Resolved]
  - Diarrhoea [Not Recovered/Not Resolved]

NARRATIVE: CASE EVENT DATE: 20180212
